FAERS Safety Report 23124384 (Version 2)
Quarter: 2023Q4

REPORT INFORMATION
  Report Type: Spontaneous
  Country: CA (occurrence: CA)
  Receive Date: 20231030
  Receipt Date: 20231220
  Transmission Date: 20240109
  Serious: Yes (Other)
  Sender: FDA-Public Use
  Company Number: CA-PFIZER INC-202200920386

PATIENT
  Age: 30 Year
  Sex: Male

DRUGS (1)
  1. ABRILADA [Suspect]
     Active Substance: ADALIMUMAB-AFZB
     Indication: Crohn^s disease
     Dosage: 1 DF WEEK 0: 160MG SC, WEEK 2: 80MG SC, THEN 40MG EVERY OTHER WEEK STARTING AT WEEK 4.
     Route: 058
     Dates: start: 20220607

REACTIONS (11)
  - Diarrhoea haemorrhagic [Unknown]
  - Drug ineffective [Unknown]
  - Condition aggravated [Not Recovered/Not Resolved]
  - Fistula [Not Recovered/Not Resolved]
  - Insomnia [Unknown]
  - Pain [Unknown]
  - Road traffic accident [Unknown]
  - Pyrexia [Unknown]
  - Constipation [Unknown]
  - Incorrect dose administered [Unknown]
  - Product communication issue [Unknown]

NARRATIVE: CASE EVENT DATE: 20220601
